FAERS Safety Report 6735093-X (Version None)
Quarter: 2010Q2

REPORT INFORMATION
  Report Type: 
  Country: None (occurrence: None)
  Receive Date: 20100521
  Receipt Date: 20100506
  Transmission Date: 20101027
  Serious: Yes (Other)
  Sender: FDA-Public Use
  Company Number: GB-MYLANLABS-2010S1008001

PATIENT
  Age: 52 Year
  Sex: Male
  Weight: 76 kg

DRUGS (9)
  1. BISOPROLOL FUMARATE [Suspect]
     Indication: DRUG USE FOR UNKNOWN INDICATION
     Route: 048
     Dates: start: 20100317, end: 20100319
  2. NEBIVOLOL [Suspect]
     Indication: DRUG USE FOR UNKNOWN INDICATION
     Route: 048
     Dates: start: 20100319, end: 20100408
  3. ASPIRIN [Concomitant]
     Indication: DRUG USE FOR UNKNOWN INDICATION
  4. ATORVASTATIN [Concomitant]
     Indication: DRUG USE FOR UNKNOWN INDICATION
  5. FUROSEMIDE [Concomitant]
     Indication: DRUG USE FOR UNKNOWN INDICATION
     Dates: start: 20100319
  6. FUROSEMIDE [Concomitant]
     Dates: end: 20100319
  7. GLYCERYL TRINITRATE [Concomitant]
     Indication: DRUG USE FOR UNKNOWN INDICATION
     Route: 055
  8. RAMIPRIL [Concomitant]
     Indication: DRUG USE FOR UNKNOWN INDICATION
  9. SPIRONOLACTONE [Concomitant]
     Indication: DRUG USE FOR UNKNOWN INDICATION
     Dates: start: 20100329

REACTIONS (2)
  - RENAL IMPAIRMENT [None]
  - SKIN DISCOLOURATION [None]
